FAERS Safety Report 20818612 (Version 2)
Quarter: 2022Q4

REPORT INFORMATION
  Report Type: Report from Study
  Country: GB (occurrence: GB)
  Receive Date: 20220512
  Receipt Date: 20221025
  Transmission Date: 20230112
  Serious: Yes (Other)
  Sender: FDA-Public Use
  Company Number: GB-GLAXOSMITHKLINE-GB2022EME063638

PATIENT

DRUGS (1)
  1. NIRAPARIB [Suspect]
     Active Substance: NIRAPARIB
     Indication: Neoplasm malignant
     Dosage: UNK

REACTIONS (17)
  - Transient ischaemic attack [Unknown]
  - Carotid artery stenosis [Unknown]
  - Dizziness [Unknown]
  - Fatigue [Unknown]
  - Poor quality sleep [Unknown]
  - Abdominal discomfort [Unknown]
  - Feeling abnormal [Unknown]
  - Proctalgia [Unknown]
  - Constipation [Unknown]
  - Dyspepsia [Unknown]
  - Decreased appetite [Unknown]
  - Pain in extremity [Unknown]
  - Limb discomfort [Unknown]
  - Abdominal pain upper [Unknown]
  - Nausea [Unknown]
  - Vomiting [Unknown]
  - Ill-defined disorder [Unknown]
